FAERS Safety Report 7534095-3 (Version None)
Quarter: 2011Q2

REPORT INFORMATION
  Report Type: 
  Country: None (occurrence: None)
  Receive Date: 20110608
  Receipt Date: 20061006
  Transmission Date: 20111010
  Serious: Yes (Other)
  Sender: FDA-Public Use
  Company Number: PHHO2005CA06347

PATIENT
  Sex: Female

DRUGS (7)
  1. SANDOSTATIN LAR [Suspect]
     Dosage: 40 MG EVERY 4 WEEKS
  2. SANDOSTATIN LAR [Suspect]
     Indication: CARCINOID TUMOUR
     Dosage: 40 MG, EVERY 3 WEEKS
     Dates: start: 20030620
  3. DYAZIDE [Concomitant]
  4. TENORMIN [Concomitant]
  5. ATIVAN [Concomitant]
  6. EFFEXOR XR [Concomitant]
  7. NAPROSYN [Concomitant]

REACTIONS (1)
  - HYPERTENSION [None]
